FAERS Safety Report 25495315 (Version 1)
Quarter: 2025Q2

REPORT INFORMATION
  Report Type: Spontaneous
  Country: JP (occurrence: JP)
  Receive Date: 20250630
  Receipt Date: 20250630
  Transmission Date: 20250717
  Serious: Yes (Hospitalization)
  Sender: ELI LILLY AND COMPANY
  Company Number: JP-ELI_LILLY_AND_COMPANY-JP202506008867

PATIENT
  Age: 85 Year
  Sex: Male

DRUGS (2)
  1. NECITUMUMAB [Suspect]
     Active Substance: NECITUMUMAB
     Indication: Squamous cell carcinoma
     Route: 041
     Dates: start: 20250529
  2. GEMCITABINE [Suspect]
     Active Substance: GEMCITABINE
     Indication: Product used for unknown indication
     Route: 041
     Dates: start: 20250619, end: 20250619

REACTIONS (2)
  - Platelet count decreased [Not Recovered/Not Resolved]
  - Perioral dermatitis [Recovered/Resolved]

NARRATIVE: CASE EVENT DATE: 20250619
